FAERS Safety Report 5421566-9 (Version None)
Quarter: 2007Q3

REPORT INFORMATION
  Report Type: 
  Country: None (occurrence: None)
  Receive Date: 20070726
  Receipt Date: 20070129
  Transmission Date: 20080115
  Serious: Yes (Other)
  Sender: FDA-Public Use
  Company Number: US200612004452

PATIENT
  Age: 85 Year
  Sex: Female

DRUGS (6)
  1. FORTEO [Suspect]
     Indication: OSTEOPOROSIS
     Dates: start: 20060601, end: 20060601
  2. FORTEO [Suspect]
     Indication: OSTEOPOROSIS
     Dates: start: 20061001, end: 20061218
  3. FORTEO [Suspect]
     Indication: OSTEOPOROSIS
     Dates: start: 20061229
  4. FORTEO PEN (TERIPARATIDE) PEN, DISPOSABLE [Concomitant]
  5. PROPRANOLOL [Concomitant]
  6. LEVOTHYROXINE SODIUM [Concomitant]

REACTIONS (1)
  - HYPERTENSION [None]
